FAERS Safety Report 8956536 (Version 1)
Quarter: 2012Q4

REPORT INFORMATION
  Report Type: 
  Country: AU (occurrence: US)
  Receive Date: 20121210
  Receipt Date: 20121210
  Transmission Date: 20130627
  Serious: Yes (Hospitalization)
  Sender: FDA-Public Use
  Company Number: AU-SANOFI-AVENTIS-2012SA089804

PATIENT
  Age: 31 Year
  Sex: Male

DRUGS (4)
  1. OXALIPLATIN [Suspect]
     Indication: COLORECTAL CARCINOMA
     Route: 065
  2. FLUOROURACIL [Suspect]
     Indication: COLORECTAL CARCINOMA
     Route: 065
  3. FLUOROURACIL [Suspect]
     Indication: COLORECTAL CARCINOMA
     Dosage: over 46 hour
     Route: 042
  4. LEUCOVORIN [Suspect]
     Indication: COLORECTAL CARCINOMA
     Route: 065

REACTIONS (3)
  - Myocardial infarction [Recovered/Resolved]
  - Chest pain [Recovered/Resolved]
  - Electrocardiogram ST segment elevation [Recovered/Resolved]
